FAERS Safety Report 7507582-1 (Version None)
Quarter: 2011Q2

REPORT INFORMATION
  Report Type: 
  Country: None (occurrence: None)
  Receive Date: 20110526
  Receipt Date: 20110406
  Transmission Date: 20111010
  Serious: Yes (Other)
  Sender: FDA-Public Use
  Company Number: US-AMGEN-USASP2011018462

PATIENT
  Age: 67 Year
  Sex: Male

DRUGS (3)
  1. NPLATE [Suspect]
     Indication: IDIOPATHIC THROMBOCYTOPENIC PURPURA
     Dosage: 920 UNK, UNK
     Dates: start: 20110107, end: 20110309
  2. IVIGLOB-EX [Concomitant]
  3. CORTICOSTEROIDS [Concomitant]

REACTIONS (2)
  - DRUG INEFFECTIVE [None]
  - TRANSFUSION [None]
